FAERS Safety Report 8622116-6 (Version None)
Quarter: 2012Q3

REPORT INFORMATION
  Report Type: 
  Country: None (occurrence: None)
  Receive Date: 20120826
  Receipt Date: 20120716
  Transmission Date: 20120928
  Serious: No
  Sender: FDA-Public Use
  Company Number: US-009507513-1207USA005297

PATIENT

DRUGS (2)
  1. PREGNYL [Suspect]
     Dosage: UNK
     Dates: start: 20120711
  2. HEXADROL [Concomitant]

REACTIONS (1)
  - ADVERSE EVENT [None]
